FAERS Safety Report 10057039 (Version 1)
Quarter: 2014Q2

REPORT INFORMATION
  Report Type: Spontaneous
  Country: BE (occurrence: BE)
  Receive Date: 20140403
  Receipt Date: 20140403
  Transmission Date: 20141212
  Serious: Yes (Other)
  Sender: FDA-Public Use
  Company Number: BE-B.I. PHARMACEUTICALS,INC./RIDGEFIELD-2014-BI-13992BL

PATIENT
  Age: 64 Year
  Sex: Male

DRUGS (3)
  1. TRAJENTA [Suspect]
     Indication: DIABETES MELLITUS
     Route: 065
     Dates: start: 201212
  2. METFORMINE [Concomitant]
     Indication: DIABETES MELLITUS
     Route: 065
  3. DIAMICRON [Concomitant]
     Indication: DIABETES MELLITUS
     Route: 065

REACTIONS (1)
  - Silent myocardial infarction [Unknown]
